FAERS Safety Report 5959752-1 (Version None)
Quarter: 2008Q4

REPORT INFORMATION
  Report Type: 
  Country: None (occurrence: None)
  Receive Date: 20081119
  Receipt Date: 20081119
  Transmission Date: 20090506
  Serious: Yes (Hospitalization)
  Sender: FDA-Public Use
  Company Number: None

PATIENT
  Age: 48 Year
  Sex: Female

DRUGS (11)
  1. HYDROMORPHONE HCL [Suspect]
     Indication: ABDOMINAL PAIN
     Dosage: 6MG, VARIABLE FREQ PO
     Route: 048
     Dates: start: 20081020
  2. TACROLIMUS [Concomitant]
  3. URSODIOL [Concomitant]
  4. PREDNISONE TAB [Concomitant]
  5. BACTRIM [Concomitant]
  6. LANSOPRAZOLE [Concomitant]
  7. ZOSYN [Concomitant]
  8. DOCUSATE [Concomitant]
  9. EPOETIN [Concomitant]
  10. SENNA [Concomitant]
  11. METOPROLOL [Concomitant]

REACTIONS (3)
  - CREATININE RENAL CLEARANCE DECREASED [None]
  - DEPRESSED LEVEL OF CONSCIOUSNESS [None]
  - LETHARGY [None]
